FAERS Safety Report 5118221-1 (Version None)
Quarter: 2006Q4

REPORT INFORMATION
  Report Type: 
  Country: None (occurrence: None)
  Receive Date: 20061002
  Receipt Date: 20060606
  Transmission Date: 20070319
  Serious: No
  Sender: FDA-Public Use
  Company Number: US-BRISTOL-MYERS SQUIBB COMPANY-13403142

PATIENT
  Age: 47 Year
  Sex: Male

DRUGS (4)
  1. ORENCIA [Suspect]
     Indication: RHEUMATOID ARTHRITIS
     Route: 042
     Dates: start: 20060418, end: 20060518
  2. ARAVA [Concomitant]
     Dates: start: 20060418
  3. INH [Concomitant]
     Dates: start: 20060418
  4. PREDNISONE [Concomitant]
     Dates: start: 20060418

REACTIONS (2)
  - NASOPHARYNGITIS [None]
  - VISUAL DISTURBANCE [None]
